FAERS Safety Report 18996134 (Version 1)
Quarter: 2021Q1

REPORT INFORMATION
  Report Type: Spontaneous
  Country: US (occurrence: US)
  Receive Date: 20210310
  Receipt Date: 20210310
  Transmission Date: 20210420
  Serious: Yes (Death)
  Sender: FDA-Public Use
  Company Number: None

PATIENT
  Age: 48 Year
  Sex: Male

DRUGS (18)
  1. PANTOPRAZOLE [Suspect]
     Active Substance: PANTOPRAZOLE
  2. TRAZODONE [Suspect]
     Active Substance: TRAZODONE HYDROCHLORIDE
  3. AMBRISENTAN 10MG TAB [Suspect]
     Active Substance: AMBRISENTAN
     Indication: PULMONARY ARTERIAL HYPERTENSION
     Route: 048
     Dates: start: 20190829, end: 202102
  4. BANOPHEN [Suspect]
     Active Substance: DIPHENHYDRAMINE HYDROCHLORIDE
  5. BENZONATATE. [Suspect]
     Active Substance: BENZONATATE
  6. PRAMOXINE?HC [Suspect]
     Active Substance: CHLOROXYLENOL\HYDROCORTISONE\PRAMOXINE HYDROCHLORIDE
  7. LOSARTAN POT [Suspect]
     Active Substance: LOSARTAN POTASSIUM
  8. OXYCODONE AND ACETAMINOPHEN [Suspect]
     Active Substance: ACETAMINOPHEN\OXYCODONE HYDROCHLORIDE
  9. EPINEPHRINE. [Suspect]
     Active Substance: EPINEPHRINE
  10. ONDANSETRON [Suspect]
     Active Substance: ONDANSETRON
  11. PREDNISONE. [Suspect]
     Active Substance: PREDNISONE
  12. METOPROL SUC ER [Suspect]
     Active Substance: METOPROLOL SUCCINATE
  13. AZITHROMYCIN ANHYDROUS. [Suspect]
     Active Substance: AZITHROMYCIN ANHYDROUS
  14. CYCLOBENZAPR [Suspect]
     Active Substance: CYCLOBENZAPRINE
  15. ALBUTEROL AER [Suspect]
     Active Substance: ALBUTEROL
  16. AMOXICILLIN. [Suspect]
     Active Substance: AMOXICILLIN
  17. BREO ELLIPTA [Suspect]
     Active Substance: FLUTICASONE FUROATE\VILANTEROL TRIFENATATE
  18. CALC ACETATE [Suspect]
     Active Substance: CALCIUM ACETATE

REACTIONS (1)
  - Death [None]

NARRATIVE: CASE EVENT DATE: 202102
